FAERS Safety Report 15657060 (Version 1)
Quarter: 2018Q4

REPORT INFORMATION
  Report Type: Spontaneous
  Country: FR (occurrence: FR)
  Receive Date: 20181126
  Receipt Date: 20181126
  Transmission Date: 20190205
  Serious: Yes (Hospitalization, Other)
  Sender: FDA-Public Use
  Company Number: FR-SAKK-2018SA167000AA

PATIENT
  Age: 30 Year
  Sex: Female

DRUGS (1)
  1. ENOXAPARIN SODIUM. [Suspect]
     Active Substance: ENOXAPARIN SODIUM
     Dosage: UNK
     Dates: start: 2010

REACTIONS (16)
  - Pyrexia [Recovered/Resolved]
  - Peripheral swelling [Recovered/Resolved]
  - Lupus nephritis [Recovered/Resolved]
  - Arthritis [Recovered/Resolved]
  - Auricular swelling [Recovered/Resolved]
  - Ear swelling [Recovered/Resolved]
  - Erythema [Recovered/Resolved]
  - Thrombosis [Recovered/Resolved]
  - Skin warm [Recovered/Resolved]
  - Tenderness [Recovered/Resolved]
  - Livedo reticularis [Recovered/Resolved]
  - Skin lesion [Recovered/Resolved]
  - Joint swelling [Recovered/Resolved]
  - Abortion spontaneous [Unknown]
  - Systemic lupus erythematosus [Recovered/Resolved]
  - Exposure during pregnancy [Unknown]
